FAERS Safety Report 7591190-0 (Version None)
Quarter: 2011Q3

REPORT INFORMATION
  Report Type: 
  Country: None (occurrence: None)
  Receive Date: 20110706
  Receipt Date: 20110623
  Transmission Date: 20111222
  Serious: Yes (Other)
  Sender: FDA-Public Use
  Company Number: BE-BRISTOL-MYERS SQUIBB COMPANY-15870165

PATIENT
  Age: 49 Year
  Sex: Male
  Weight: 50 kg

DRUGS (2)
  1. ERBITUX [Suspect]
     Dosage: 5 MG/ML IS THE STRENGTH.
  2. CISPLATIN [Concomitant]

REACTIONS (1)
  - OEDEMA [None]
